FAERS Safety Report 25572588 (Version 1)
Quarter: 2025Q3

REPORT INFORMATION
  Report Type: Report from Study
  Country: EU (occurrence: EU)
  Receive Date: 20250717
  Receipt Date: 20250717
  Transmission Date: 20251021
  Serious: Yes (Other)
  Sender: AMGEN
  Company Number: EU-ASTRAZENECA-202411GLO008753DE

PATIENT
  Sex: Female
  Weight: 100 kg

DRUGS (6)
  1. BEVACIZUMAB [Suspect]
     Active Substance: BEVACIZUMAB
     Indication: Ovarian cancer
     Route: 048
     Dates: start: 20240625
  2. OLAPARIB [Suspect]
     Active Substance: OLAPARIB
     Indication: Ovarian cancer
     Route: 048
     Dates: start: 20240625
  3. SIMVASTATIN [Concomitant]
     Active Substance: SIMVASTATIN
     Indication: Prophylaxis
     Dosage: 40 MILLIGRAM, QD
     Route: 048
     Dates: start: 2015
  4. VENLAFAXINE HYDROCHLORIDE [Concomitant]
     Active Substance: VENLAFAXINE HYDROCHLORIDE
     Indication: Concomitant disease aggravated
     Dosage: 75 MILLIGRAM, QD
     Route: 048
     Dates: start: 2011
  5. TORSEMIDE [Concomitant]
     Active Substance: TORSEMIDE
     Indication: Concomitant disease aggravated
     Dosage: 5 MILLIGRAM, QD
     Route: 048
     Dates: start: 2020
  6. GABAPENTIN [Concomitant]
     Active Substance: GABAPENTIN
     Indication: Adverse event
     Route: 048
     Dates: start: 20240409

REACTIONS (1)
  - Renal failure [Not Recovered/Not Resolved]

NARRATIVE: CASE EVENT DATE: 20240827
